FAERS Safety Report 12843040 (Version 1)
Quarter: 2016Q4

REPORT INFORMATION
  Report Type: Spontaneous
  Country: US (occurrence: US)
  Receive Date: 20161013
  Receipt Date: 20161013
  Transmission Date: 20170207
  Serious: Yes (Hospitalization)
  Sender: FDA-Public Use
  Company Number: None

PATIENT
  Age: 17 Year
  Sex: Male
  Weight: 68.4 kg

DRUGS (4)
  1. DAUNORUBICIN [Suspect]
     Active Substance: DAUNORUBICIN
     Dates: end: 20161007
  2. ONCASPAR [Suspect]
     Active Substance: PEGASPARGASE
     Dates: end: 20161010
  3. CYTARABINE. [Suspect]
     Active Substance: CYTARABINE
     Dates: end: 20161007
  4. VINCRISTINE SULFATE. [Suspect]
     Active Substance: VINCRISTINE SULFATE
     Dates: end: 20161007

REACTIONS (3)
  - Extradural haematoma [None]
  - Ecchymosis [None]
  - Traumatic lumbar puncture [None]

NARRATIVE: CASE EVENT DATE: 20161010
